FAERS Safety Report 5093533-9 (Version None)
Quarter: 2006Q3

REPORT INFORMATION
  Report Type: 
  Country: None (occurrence: None)
  Receive Date: 20060829
  Receipt Date: 20060817
  Transmission Date: 20061208
  Serious: Yes (Other)
  Sender: FDA-Public Use
  Company Number: 2006100201

PATIENT
  Age: 54 Year
  Sex: Female

DRUGS (1)
  1. NORVASC [Suspect]
     Indication: DRUG USE FOR UNKNOWN INDICATION

REACTIONS (2)
  - COLON OPERATION [None]
  - NEOPLASM MALIGNANT [None]
